FAERS Safety Report 5837188-1 (Version None)
Quarter: 2008Q3

REPORT INFORMATION
  Report Type: 
  Country: None (occurrence: None)
  Receive Date: 20080731
  Receipt Date: 20080610
  Transmission Date: 20090109
  Serious: No
  Sender: FDA-Public Use
  Company Number: US200806002523

PATIENT
  Age: 70 Year
  Sex: Male

DRUGS (1)
  1. BYETTA [Suspect]
     Indication: TYPE 2 DIABETES MELLITUS
     Dosage: D/F, SUBCUTANOUS
     Route: 058
     Dates: start: 20080101, end: 20080301

REACTIONS (1)
  - BLOOD GLUCOSE INCREASED [None]
